FAERS Safety Report 17846544 (Version 1)
Quarter: 2020Q2

REPORT INFORMATION
  Report Type: Spontaneous
  Country: GB (occurrence: GB)
  Receive Date: 20200601
  Receipt Date: 20200601
  Transmission Date: 20200714
  Serious: Yes (Hospitalization)
  Sender: FDA-Public Use
  Company Number: GB-MYLANLABS-2020M1052297

PATIENT
  Age: 85 Year
  Sex: Female

DRUGS (11)
  1. APIXABAN [Suspect]
     Active Substance: APIXABAN
     Indication: PRODUCT USED FOR UNKNOWN INDICATION
     Dosage: 10 MILLIGRAM, QD (THERE ARE PLANS TO RESTART THIS ONCE SYMPTOMS ABATE. UNDER REVIEW)
     Route: 048
     Dates: end: 20200507
  2. RANITIDINE. [Concomitant]
     Active Substance: RANITIDINE
     Dosage: 300 MILLIGRAM, QD
     Route: 050
  3. CODEINE [Concomitant]
     Active Substance: CODEINE
     Dosage: 30 MILLIGRAM, PRN (ONE OR TWO, FOUR TIMES A DAY)
     Route: 050
  4. LAXIDO [Concomitant]
     Active Substance: POLYETHYLENE GLYCOL 3350\POTASSIUM CHLORIDE\SODIUM BICARBONATE\SODIUM CHLORIDE
     Dosage: 1 DOSAGE FORM, PRN
     Route: 048
  5. BISOPROLOL [Concomitant]
     Active Substance: BISOPROLOL
     Dosage: 2.5 MILLIGRAM, QD, MORNING
     Route: 048
  6. ADCAL D3 [Concomitant]
     Active Substance: CALCIUM CARBONATE\CHOLECALCIFEROL
     Dosage: 3000 MILLIGRAM, QD
     Route: 048
  7. FOLIC ACID. [Concomitant]
     Active Substance: FOLIC ACID
     Dosage: ON DIFFERENT DAY TO METHOTREXATE
     Route: 048
  8. FENOFIBRATE MICRO [Concomitant]
     Active Substance: FENOFIBRATE
     Dosage: 267 MILLIGRAM, QD
     Route: 048
  9. ALENDRONATE [Suspect]
     Active Substance: ALENDRONATE SODIUM
     Indication: PRODUCT USED FOR UNKNOWN INDICATION
     Dosage: 70 MILLIGRAM, QW
     Route: 048
     Dates: end: 20200507
  10. PARACETAMOL [Concomitant]
     Active Substance: ACETAMINOPHEN
     Dosage: 500 MILLIGRAM, PRN (ONE OR TWO, FOUR TIMES A DAY)
     Route: 048
  11. METHOTREXATE. [Concomitant]
     Active Substance: METHOTREXATE
     Dosage: 20 MILLIGRAM, QW
     Route: 048

REACTIONS (3)
  - Gastrointestinal haemorrhage [Recovering/Resolving]
  - Oesophagitis [Recovering/Resolving]
  - Haematemesis [Recovering/Resolving]

NARRATIVE: CASE EVENT DATE: 20200507
